FAERS Safety Report 18649465 (Version 1)
Quarter: 2020Q4

REPORT INFORMATION
  Report Type: Spontaneous
  Country: FR (occurrence: FR)
  Receive Date: 20201222
  Receipt Date: 20201222
  Transmission Date: 20210114
  Serious: Yes (Other)
  Sender: FDA-Public Use
  Company Number: FR-ADDMEDICA-202000017

PATIENT
  Age: 14 Year
  Sex: Male
  Weight: 47.6 kg

DRUGS (4)
  1. UVEDOSE [Concomitant]
     Active Substance: CHOLECALCIFEROL
  2. SPECIAFOLDINE [Concomitant]
     Active Substance: FOLIC ACID
     Indication: PRODUCT USED FOR UNKNOWN INDICATION
     Route: 048
     Dates: start: 200504
  3. SIKLOS [Suspect]
     Active Substance: HYDROXYUREA
     Indication: DIRECTIONAL DOPPLER FLOW TESTS ABNORMAL
     Route: 048
     Dates: start: 201407, end: 202012
  4. ORACILLIN [Concomitant]
     Indication: PRODUCT USED FOR UNKNOWN INDICATION
     Route: 048
     Dates: start: 200504

REACTIONS (2)
  - Testicular disorder [Unknown]
  - Gynaecomastia [Unknown]

NARRATIVE: CASE EVENT DATE: 20191215
